FAERS Safety Report 18948111 (Version 1)
Quarter: 2021Q1

REPORT INFORMATION
  Report Type: Spontaneous
  Country: FR (occurrence: FR)
  Receive Date: 20210226
  Receipt Date: 20210226
  Transmission Date: 20210420
  Serious: Yes (Hospitalization)
  Sender: FDA-Public Use
  Company Number: FR-ELI_LILLY_AND_COMPANY-FR202102011267

PATIENT
  Age: 36 Year
  Sex: Male

DRUGS (3)
  1. OLANZAPINE. [Suspect]
     Active Substance: OLANZAPINE
     Indication: SCHIZOPHRENIA
     Dosage: 30 MG, UNKNOWN
     Route: 065
     Dates: start: 20210122, end: 20210124
  2. LARGACTIL [CHLORPROMAZINE EMBONATE] [Suspect]
     Active Substance: CHLORPROMAZINE PAMOATE
     Indication: SCHIZOPHRENIA
     Dosage: 550 MG, UNKNOWN
     Route: 065
     Dates: start: 20210118, end: 20210127
  3. HALDOL [Suspect]
     Active Substance: HALOPERIDOL
     Indication: SCHIZOPHRENIA
     Dosage: 60 MG, UNKNOWN
     Route: 065
     Dates: start: 20210118, end: 20210202

REACTIONS (1)
  - Hepatic cirrhosis [Recovering/Resolving]

NARRATIVE: CASE EVENT DATE: 20210125
